FAERS Safety Report 9439667 (Version 3)
Quarter: 2013Q4

REPORT INFORMATION
  Report Type: Spontaneous
  Country: US (occurrence: US)
  Receive Date: 20130805
  Receipt Date: 20131226
  Transmission Date: 20140711
  Serious: No
  Sender: FDA-Public Use
  Company Number: US-PFIZER INC-2013223653

PATIENT
  Age: 64 Year
  Sex: Female

DRUGS (11)
  1. XALKORI [Suspect]
     Indication: LUNG CANCER METASTATIC
     Dosage: 250 MG, 2X/DAY
     Route: 048
     Dates: start: 20130330
  2. ONDANSETRON [Concomitant]
     Indication: NAUSEA
     Dosage: 8 MG, (Q 8 PRN)
     Dates: start: 20130118
  3. ONDANSETRON [Concomitant]
     Indication: VOMITING
  4. PROCHLORPERAZINE [Concomitant]
     Indication: NAUSEA
     Dosage: 10 MG, (Q 4-6 PRN)
     Dates: start: 20130118
  5. PROCHLORPERAZINE [Concomitant]
     Indication: VOMITING
  6. ALPRAZOLAM [Concomitant]
     Indication: ANXIETY
     Dosage: 0.5 MG, AS NEEDED
  7. CYMBALTA [Concomitant]
     Indication: DEPRESSION
     Dosage: 60 MG, DAILY
  8. SPIRIVA [Concomitant]
     Dosage: 18 UG, AS NEEDED
  9. OMEPRAZOLE [Concomitant]
     Indication: GASTROOESOPHAGEAL REFLUX DISEASE
     Dosage: 40 MG, 2X/DAY
  10. DULERA [Concomitant]
     Dosage: UNK, 2X/DAY
  11. HYDROCODONE [Concomitant]
     Dosage: 3/325 MG, AS NEEDED (PRN)

REACTIONS (5)
  - Vomiting [Recovered/Resolved]
  - Nausea [Recovered/Resolved]
  - Diarrhoea [Unknown]
  - Dysphagia [Recovered/Resolved]
  - Regurgitation [Recovered/Resolved]
